FAERS Safety Report 23620996 (Version 1)
Quarter: 2024Q1

REPORT INFORMATION
  Report Type: Report from Study
  Country: GR (occurrence: GR)
  Receive Date: 20240312
  Receipt Date: 20240312
  Transmission Date: 20240410
  Serious: Yes (Other)
  Sender: FDA-Public Use
  Company Number: GR-CELLTRION INC.-2024GR005563

PATIENT

DRUGS (26)
  1. RITUXIMAB [Suspect]
     Active Substance: RITUXIMAB
     Indication: Diffuse large B-cell lymphoma
     Dosage: 1ST CYCLE, 19/FEB/2020 (2ND CYCLE), 18/MAR/2020 (3RD CYCLE), 29/APR/2020 (4TH CYCLE), 20/MAY/2020 (5
     Route: 042
     Dates: start: 20200115
  2. HYALURONIDASE (HUMAN RECOMBINANT)\RITUXIMAB [Suspect]
     Active Substance: HYALURONIDASE (HUMAN RECOMBINANT)\RITUXIMAB
     Indication: Diffuse large B-cell lymphoma
     Dosage: 2ND CYCLE
     Route: 058
     Dates: start: 20200219
  3. HYALURONIDASE (HUMAN RECOMBINANT)\RITUXIMAB [Suspect]
     Active Substance: HYALURONIDASE (HUMAN RECOMBINANT)\RITUXIMAB
     Dosage: 3RD CYCLE
     Route: 058
     Dates: start: 20200318
  4. BENDAMUSTINE [Suspect]
     Active Substance: BENDAMUSTINE
     Indication: Diffuse large B-cell lymphoma
     Dosage: 1ST CYCLE
     Route: 042
     Dates: start: 20200116
  5. BENDAMUSTINE [Suspect]
     Active Substance: BENDAMUSTINE
     Dosage: 1ST CYCLE
     Route: 042
     Dates: start: 20200117
  6. BENDAMUSTINE [Suspect]
     Active Substance: BENDAMUSTINE
     Dosage: 2ND CYCLE
     Route: 042
     Dates: start: 20200219
  7. BENDAMUSTINE [Suspect]
     Active Substance: BENDAMUSTINE
     Dosage: 2ND CYCLE
     Route: 042
     Dates: start: 20200220
  8. BENDAMUSTINE [Suspect]
     Active Substance: BENDAMUSTINE
     Dosage: 3RD CYCLE, 29/APR/2020 (4TH CYCLE), 20/MAY/2020 (5TH CYCLE), 24/JUN/2020 (6TH CYCLE)
     Route: 042
     Dates: start: 20200318
  9. CYCLOPHOSPHAMIDE [Suspect]
     Active Substance: CYCLOPHOSPHAMIDE
     Indication: Myelosuppression
     Dosage: 1ST CYCLE
     Route: 042
     Dates: start: 20200116
  10. CYCLOPHOSPHAMIDE [Suspect]
     Active Substance: CYCLOPHOSPHAMIDE
     Dosage: 1ST CYCLE
     Route: 042
     Dates: start: 20200117
  11. CYCLOPHOSPHAMIDE [Suspect]
     Active Substance: CYCLOPHOSPHAMIDE
     Dosage: 2ND CYCLE
     Route: 042
     Dates: start: 20200219
  12. CYCLOPHOSPHAMIDE [Suspect]
     Active Substance: CYCLOPHOSPHAMIDE
     Dosage: 2ND CYCLE
     Route: 042
     Dates: start: 20200220
  13. VINCRISTINE [Suspect]
     Active Substance: VINCRISTINE
     Indication: Myelosuppression
     Dosage: 1ST CYCLE
     Route: 042
     Dates: start: 20200116
  14. VINCRISTINE [Suspect]
     Active Substance: VINCRISTINE
     Dosage: 1ST CYCLE
     Route: 042
     Dates: start: 20200117
  15. VINCRISTINE [Suspect]
     Active Substance: VINCRISTINE
     Dosage: 2ND CYCLE
     Route: 042
     Dates: start: 20200219
  16. VINCRISTINE [Suspect]
     Active Substance: VINCRISTINE
     Dosage: 2ND CYCLE
     Route: 042
     Dates: start: 20200220
  17. POLATUZUMAB VEDOTIN [Suspect]
     Active Substance: POLATUZUMAB VEDOTIN
     Indication: Diffuse large B-cell lymphoma
     Dosage: 2 VIALS, 1ST CYCLE
     Route: 042
     Dates: start: 20200116
  18. POLATUZUMAB VEDOTIN [Suspect]
     Active Substance: POLATUZUMAB VEDOTIN
     Dosage: 2ND CYCLE
     Route: 042
     Dates: start: 20200219
  19. POLATUZUMAB VEDOTIN [Suspect]
     Active Substance: POLATUZUMAB VEDOTIN
     Dosage: 3RD CYCLE, 29/APR/2020 (4TH CYCLE), 20/MAY/2020 (5TH CYCLE), 24/JUN/2020 (6TH CYCLE)
     Route: 042
     Dates: start: 20200318
  20. DOXORUBICIN [Suspect]
     Active Substance: DOXORUBICIN
     Indication: Myelosuppression
     Dosage: 1ST CYCLE
     Route: 042
     Dates: start: 20200116
  21. DOXORUBICIN [Suspect]
     Active Substance: DOXORUBICIN
     Dosage: 1ST CYCLE
     Route: 042
     Dates: start: 20200118
  22. DOXORUBICIN [Suspect]
     Active Substance: DOXORUBICIN
     Dosage: 2ND CYCLE
     Route: 042
     Dates: start: 20200219
  23. DOXORUBICIN [Suspect]
     Active Substance: DOXORUBICIN
     Dosage: 2ND CYCLE
     Route: 042
     Dates: start: 20200220
  24. VALTREX [Concomitant]
     Active Substance: VALACYCLOVIR HYDROCHLORIDE
     Dosage: 1X2
  25. SULFAMETHOXAZOLE\TRIMETHOPRIM [Concomitant]
     Active Substance: SULFAMETHOXAZOLE\TRIMETHOPRIM
     Dosage: TB (800+160MG) 1X2 EVERY MONDAY-WEDNESDAY-FRIDAY
  26. METFORMIN [Concomitant]
     Active Substance: METFORMIN HYDROCHLORIDE
     Indication: Type 2 diabetes mellitus
     Dosage: 1X2DAY

REACTIONS (4)
  - Thrombocytopenia [Recovered/Resolved]
  - Neutropenia [Recovered/Resolved]
  - Neutropenia [Recovered/Resolved]
  - Leukopenia [Recovered/Resolved]

NARRATIVE: CASE EVENT DATE: 20200212
